FAERS Safety Report 12831529 (Version 2)
Quarter: 2016Q4

REPORT INFORMATION
  Report Type: Report from Study
  Country: PL (occurrence: PL)
  Receive Date: 20161009
  Receipt Date: 20161013
  Transmission Date: 20170207
  Serious: Yes (Hospitalization, Other)
  Sender: FDA-Public Use
  Company Number: PHHY2016PL093337

PATIENT
  Age: 45 Year
  Sex: Female

DRUGS (7)
  1. ALLUPOL [Concomitant]
     Active Substance: ALLOPURINOL
     Indication: PRODUCT USED FOR UNKNOWN INDICATION
     Dosage: UNK UNK, QD
     Route: 065
  2. ESSLIVER FORTE [Concomitant]
     Indication: PRODUCT USED FOR UNKNOWN INDICATION
     Dosage: UNK UNK, TID
     Route: 065
  3. TASIGNA [Suspect]
     Active Substance: NILOTINIB
     Dosage: 200 MG, QD (1 X 200)
     Route: 048
     Dates: end: 20160801
  4. TASIGNA [Suspect]
     Active Substance: NILOTINIB
     Indication: CHRONIC MYELOID LEUKAEMIA
     Dosage: 200 MG, BID (2 X 200)
     Route: 048
  5. TASIGNA [Suspect]
     Active Substance: NILOTINIB
     Indication: DRUG INTOLERANCE
     Dosage: 400 MG, BID (2 X 400 MG)
     Route: 048
     Dates: start: 20160623
  6. HEPAREGEN [Concomitant]
     Indication: PRODUCT USED FOR UNKNOWN INDICATION
     Dosage: 2 X 2 TABLETS
     Route: 065
  7. PROURSAN [Concomitant]
     Indication: PRODUCT USED FOR UNKNOWN INDICATION
     Dosage: UNK UNK, QD
     Route: 065

REACTIONS (23)
  - Alanine aminotransferase increased [Unknown]
  - Red cell distribution width increased [Unknown]
  - White blood cell count increased [Unknown]
  - Antibody test abnormal [Unknown]
  - Blood uric acid increased [Unknown]
  - Blood glucose increased [Unknown]
  - Liver injury [Recovered/Resolved]
  - Neutrophil count increased [Unknown]
  - Rash pruritic [Unknown]
  - Hepatic failure [Recovered/Resolved]
  - Blood lactate dehydrogenase increased [Unknown]
  - Uterine leiomyoma [Unknown]
  - Blood creatinine increased [Unknown]
  - Haemorrhage [Unknown]
  - Haemangioma of liver [Unknown]
  - Mean cell haemoglobin decreased [Unknown]
  - Gamma-glutamyltransferase increased [Unknown]
  - Asthenia [Unknown]
  - Blood urea increased [Unknown]
  - Aspartate aminotransferase increased [Unknown]
  - Hepatitis [Unknown]
  - Gallbladder disorder [Unknown]
  - Rash generalised [Unknown]

NARRATIVE: CASE EVENT DATE: 20160728
